FAERS Safety Report 8064223-5 (Version None)
Quarter: 2012Q1

REPORT INFORMATION
  Report Type: 
  Country: None (occurrence: None)
  Receive Date: 20120123
  Receipt Date: 20120119
  Transmission Date: 20120608
  Serious: No
  Sender: FDA-Public Use
  Company Number: US-PFIZER INC-2012016082

PATIENT
  Sex: Male

DRUGS (2)
  1. AMITRIPTYLINE [Concomitant]
     Dosage: UNK
  2. GABAPENTIN [Suspect]
     Dosage: UNK

REACTIONS (5)
  - MEMORY IMPAIRMENT [None]
  - WEIGHT INCREASED [None]
  - ASTHENIA [None]
  - AGGRESSION [None]
  - FEELING ABNORMAL [None]
